FAERS Safety Report 18037077 (Version 1)
Quarter: 2020Q3

REPORT INFORMATION
  Report Type: Report from Study
  Country: IT (occurrence: IT)
  Receive Date: 20200717
  Receipt Date: 20200717
  Transmission Date: 20201103
  Serious: Yes (Other)
  Sender: FDA-Public Use
  Company Number: IT-ACCORD-190903

PATIENT
  Age: 61 Year
  Sex: Male

DRUGS (11)
  1. HALCION [Suspect]
     Active Substance: TRIAZOLAM
     Dosage: STRENGTH:250 MICRO GRAMS
     Route: 048
     Dates: start: 20200607, end: 20200607
  2. NORVASC [Concomitant]
     Active Substance: AMLODIPINE BESYLATE
     Dosage: STRENGTH: 10 MG
  3. TRIATEC [Concomitant]
     Dosage: STRENGTH:5 MG
  4. QUETIAPINE. [Suspect]
     Active Substance: QUETIAPINE
     Route: 048
     Dates: start: 20200607, end: 20200607
  5. TRITTICO [Suspect]
     Active Substance: TRAZODONE HYDROCHLORIDE
     Dosage: STRENGTH: 150 MG
     Route: 048
     Dates: start: 20200607, end: 20200607
  6. ENOXAPARIN ROVI [Concomitant]
  7. BACLOFEN MYLAN [Concomitant]
     Active Substance: BACLOFEN
     Dosage: STRENGTH:25 MG
  8. OLANZAPINE. [Suspect]
     Active Substance: OLANZAPINE
     Route: 048
     Dates: start: 20200607, end: 20200607
  9. MACROGOL [Concomitant]
     Active Substance: POLYETHYLENE GLYCOLS
  10. TAMSULOSIN/TAMSULOSIN HYDROCHLORIDE [Concomitant]
     Active Substance: TAMSULOSIN HYDROCHLORIDE
  11. LEVOPRAID [Concomitant]
     Dosage: STRENGTH:25 MG / ML

REACTIONS (3)
  - Dizziness [Recovering/Resolving]
  - Wrong patient received product [Unknown]
  - Confusional state [Recovering/Resolving]

NARRATIVE: CASE EVENT DATE: 20200607
